FAERS Safety Report 9091554 (Version 1)
Quarter: 2013Q1

REPORT INFORMATION
  Report Type: Spontaneous
  Country: US (occurrence: US)
  Receive Date: 20130131
  Receipt Date: 20130131
  Transmission Date: 20140127
  Serious: No
  Sender: FDA-Public Use
  Company Number: US-ABBOTT-12P-163-0990531-00

PATIENT
  Sex: Male
  Weight: 70.37 kg

DRUGS (5)
  1. HUMIRA [Suspect]
     Indication: PSORIASIS
     Dates: start: 201207
  2. HUMIRA [Suspect]
     Indication: PSORIATIC ARTHROPATHY
  3. CELEXA [Concomitant]
     Indication: ANXIETY
  4. XYZAL [Concomitant]
     Indication: HYPERSENSITIVITY
  5. XYZAL [Concomitant]
     Indication: SINUS DISORDER

REACTIONS (2)
  - Drug ineffective [Not Recovered/Not Resolved]
  - Pain in extremity [Not Recovered/Not Resolved]
